FAERS Safety Report 6651076-2 (Version None)
Quarter: 2010Q1

REPORT INFORMATION
  Report Type: 
  Country: None (occurrence: None)
  Receive Date: 20100325
  Receipt Date: 20100315
  Transmission Date: 20100710
  Serious: Yes (Life-Threatening, Hospitalization)
  Sender: FDA-Public Use
  Company Number: ES-PFIZER INC-2010033438

PATIENT
  Age: 71 Year
  Sex: Male

DRUGS (6)
  1. EPLERENONE [Suspect]
     Indication: HYPERTENSION
     Dosage: 25 MG, UNK
     Dates: start: 20080101, end: 20100115
  2. SINTROM [Interacting]
     Indication: ATRIAL FIBRILLATION
     Dosage: 25 MG, 1X/DAY
     Route: 048
     Dates: start: 20080101
  3. PENTOXIFYLLINE [Interacting]
     Indication: VENOUS INSUFFICIENCY
     Dosage: 0.6 GBQ, 2X/DAY
     Route: 048
     Dates: start: 20100101, end: 20100115
  4. ENALAPRIL [Concomitant]
     Indication: HYPERTENSION
     Dosage: 20 MBQ, 1X/DAY
     Route: 048
     Dates: start: 20080101
  5. FUROSEMIDE [Concomitant]
     Indication: HYPERTENSION
     Dosage: 40 MG, 1X/DAY
     Route: 048
     Dates: start: 20080101
  6. LESCOL [Concomitant]
     Indication: DYSLIPIDAEMIA
     Dosage: 80 MG, 1X/DAY
     Route: 048
     Dates: start: 20080101

REACTIONS (2)
  - DRUG INTERACTION [None]
  - UPPER GASTROINTESTINAL HAEMORRHAGE [None]
